FAERS Safety Report 23648284 (Version 1)
Quarter: 2024Q1

REPORT INFORMATION
  Report Type: Spontaneous
  Country: FR (occurrence: FR)
  Receive Date: 20240319
  Receipt Date: 20240319
  Transmission Date: 20240410
  Serious: Yes (Other)
  Sender: FDA-Public Use
  Company Number: None

PATIENT
  Age: 24 Year
  Sex: Female
  Weight: 54 kg

DRUGS (4)
  1. SERTRALINE HYDROCHLORIDE [Suspect]
     Active Substance: SERTRALINE HYDROCHLORIDE
     Indication: Anxiety
     Dosage: 1 DOSAGE FORM, QD (1 CAPSULE PER DAY)
     Route: 048
     Dates: start: 20240127, end: 20240205
  2. ALPRAZOLAM [Concomitant]
     Active Substance: ALPRAZOLAM
     Indication: Product used for unknown indication
     Dosage: UNK (SCORED TABLET)
     Route: 065
  3. HYDROCORTISONE [Concomitant]
     Active Substance: HYDROCORTISONE
     Indication: Adrenogenital syndrome
     Dosage: UNK
     Route: 065
  4. ETHINYL ESTRADIOL\LEVONORGESTREL [Concomitant]
     Active Substance: ETHINYL ESTRADIOL\LEVONORGESTREL
     Indication: Oral contraception
     Dosage: UNK
     Route: 065

REACTIONS (8)
  - Suicidal ideation [Recovering/Resolving]
  - Crying [Recovering/Resolving]
  - Feeling guilty [Recovering/Resolving]
  - Condition aggravated [Not Recovered/Not Resolved]
  - Hyperhidrosis [Recovering/Resolving]
  - Tachycardia [Recovering/Resolving]
  - Tremor [Recovering/Resolving]
  - Abdominal pain [Recovering/Resolving]

NARRATIVE: CASE EVENT DATE: 20240127
